FAERS Safety Report 7434546-9 (Version None)
Quarter: 2011Q2

REPORT INFORMATION
  Report Type: 
  Country: None (occurrence: None)
  Receive Date: 20110425
  Receipt Date: 20110418
  Transmission Date: 20111010
  Serious: Yes (Other)
  Sender: FDA-Public Use
  Company Number: AT-MPIJNJ-2011-01656

PATIENT

DRUGS (4)
  1. VELCADE [Suspect]
     Indication: MULTIPLE MYELOMA
  2. DEXAMETHASONE [Concomitant]
     Indication: MULTIPLE MYELOMA
     Dosage: 40 MG, UNK
  3. CLAVAMOX                           /01000301/ [Concomitant]
  4. THALIDOMIDE [Concomitant]
     Indication: MULTIPLE MYELOMA

REACTIONS (2)
  - INFECTION [None]
  - RASH [None]
